FAERS Safety Report 8998628 (Version 1)
Quarter: 2013Q1

REPORT INFORMATION
  Report Type: Spontaneous
  Country: MX (occurrence: MX)
  Receive Date: 20130103
  Receipt Date: 20130103
  Transmission Date: 20140127
  Serious: Yes (Other)
  Sender: FDA-Public Use
  Company Number: PHHY2013MX000987

PATIENT
  Age: 82 Year
  Sex: Male

DRUGS (5)
  1. EXELON PATCH [Suspect]
     Indication: DEMENTIA ALZHEIMER^S TYPE
     Dosage: 4.6 MG, DAILY
     Route: 062
     Dates: start: 201001
  2. EXELON PATCH [Suspect]
     Dosage: 9.5 MG, DAILY
     Route: 062
     Dates: start: 201002
  3. KEPPRA [Concomitant]
     Indication: CONVULSION
     Dosage: UNK UKN, 2 DAILY
  4. ASPIRINA [Concomitant]
     Indication: PAIN
     Dosage: UNK UKN, 1 DAILY
  5. EXFORGE [Concomitant]
     Indication: HYPERTENSION
     Dosage: UNK UKN, 1 DAILY

REACTIONS (1)
  - Embolism [Recovered/Resolved]
